FAERS Safety Report 5648126-9 (Version None)
Quarter: 2008Q1

REPORT INFORMATION
  Report Type: 
  Country: None (occurrence: None)
  Receive Date: 20080304
  Receipt Date: 20080222
  Transmission Date: 20080703
  Serious: Yes (Death, Other)
  Sender: FDA-Public Use
  Company Number: US-JNJFOC-20080206152

PATIENT
  Sex: Male
  Weight: 147.42 kg

DRUGS (4)
  1. FENTANYL TRANSDERMAL SYSTEM [Suspect]
     Indication: BONE PAIN
     Dosage: PATCH CHANGED EVERY 48-72 HOURS AS NEEDED
     Route: 062
  2. ATIVAN [Suspect]
     Indication: CONFUSIONAL STATE
     Route: 048
  3. ATENOLOL [Concomitant]
     Indication: HYPERTENSION
     Route: 048
  4. DIURETIC [Concomitant]
     Indication: HYPERTENSION
     Route: 048

REACTIONS (7)
  - ASTHENIA [None]
  - CONFUSIONAL STATE [None]
  - DEATH [None]
  - DYSSTASIA [None]
  - INAPPROPRIATE SCHEDULE OF DRUG ADMINISTRATION [None]
  - PHARMACEUTICAL PRODUCT COMPLAINT [None]
  - SEDATION [None]
